FAERS Safety Report 20727619 (Version 1)
Quarter: 2022Q2

REPORT INFORMATION
  Report Type: Spontaneous
  Country: US (occurrence: None)
  Receive Date: 20220419
  Receipt Date: 20220419
  Transmission Date: 20220721
  Serious: No
  Sender: FDA-Public Use
  Company Number: US-ROCHE-2858195

PATIENT
  Sex: Male

DRUGS (1)
  1. AVASTIN [Suspect]
     Active Substance: BEVACIZUMAB
     Indication: Renal cell carcinoma
     Route: 042

REACTIONS (5)
  - Hypertension [Unknown]
  - Haemoglobin decreased [Not Recovered/Not Resolved]
  - Neoplasm progression [Unknown]
  - Thyroid disorder [Unknown]
  - Haemorrhoids [Unknown]
